FAERS Safety Report 8486433-5 (Version None)
Quarter: 2012Q3

REPORT INFORMATION
  Report Type: 
  Country: None (occurrence: None)
  Receive Date: 20120703
  Receipt Date: 20120619
  Transmission Date: 20120928
  Serious: Yes (Other)
  Sender: FDA-Public Use
  Company Number: CHPA2012US013418

PATIENT
  Sex: Male

DRUGS (1)
  1. EXCEDRIN EXTRA STRENGTH TABLETS [Suspect]
     Indication: HEADACHE
     Dosage: UNK DF, UNK
     Route: 048
     Dates: start: 20110501

REACTIONS (3)
  - PLANTAR FASCIITIS [None]
  - OEDEMA PERIPHERAL [None]
  - ARTHRALGIA [None]
